FAERS Safety Report 21986056 (Version 1)
Quarter: 2023Q1

REPORT INFORMATION
  Report Type: Report from Study
  Country: US (occurrence: US)
  Receive Date: 20230213
  Receipt Date: 20230213
  Transmission Date: 20230418
  Serious: Yes (Other)
  Sender: FDA-Public Use
  Company Number: US-MYLANLABS-2023M1014962

PATIENT
  Sex: Male
  Weight: 101.15 kg

DRUGS (1)
  1. GLATIRAMER ACETATE [Interacting]
     Active Substance: GLATIRAMER ACETATE
     Indication: Relapsing-remitting multiple sclerosis
     Dosage: 40 MILLIGRAM, 3XW
     Route: 058

REACTIONS (9)
  - Multiple sclerosis relapse [Unknown]
  - Plasma cell myeloma refractory [Unknown]
  - Deafness unilateral [Unknown]
  - Drug interaction [Unknown]
  - COVID-19 [Unknown]
  - Paraesthesia [Unknown]
  - Somnolence [Unknown]
  - Abdominal distension [Unknown]
  - Asthenia [Unknown]
